FAERS Safety Report 21687886 (Version 1)
Quarter: 2022Q4

REPORT INFORMATION
  Report Type: Report from Study
  Country: US (occurrence: US)
  Receive Date: 20221206
  Receipt Date: 20221206
  Transmission Date: 20230113
  Serious: Yes (Hospitalization, Other)
  Sender: FDA-Public Use
  Company Number: US-002147023-NVSC2022US279083

PATIENT
  Age: 69 Year
  Sex: Male

DRUGS (10)
  1. METOLAZONE [Suspect]
     Active Substance: METOLAZONE
     Indication: Cardiac failure
     Dosage: UNK
     Route: 065
     Dates: start: 20201008
  2. METOLAZONE [Suspect]
     Active Substance: METOLAZONE
     Dosage: 5 MG, QD
     Route: 048
     Dates: start: 20220401
  3. METOLAZONE [Suspect]
     Active Substance: METOLAZONE
     Dosage: UNK, PRN
     Route: 065
     Dates: start: 20220403
  4. METOLAZONE [Suspect]
     Active Substance: METOLAZONE
     Dosage: 5 MG, QD
     Route: 048
     Dates: start: 20220407
  5. RIVAROXABAN [Concomitant]
     Active Substance: RIVAROXABAN
     Indication: Atrial flutter
     Dosage: 20 MG, QD
     Route: 048
     Dates: start: 20200208
  6. SILDENAFIL [Concomitant]
     Active Substance: SILDENAFIL
     Indication: Erectile dysfunction
     Dosage: 100 MG, QD, PRN
     Route: 048
     Dates: start: 20210129
  7. ACETAMINOPHEN [Concomitant]
     Active Substance: ACETAMINOPHEN
     Indication: Pain
     Dosage: 650 MG, QD
     Route: 048
  8. TORSEMIDE [Concomitant]
     Active Substance: TORSEMIDE
     Indication: Cardiac failure
     Dosage: 20 MG, QD
     Route: 048
     Dates: start: 20210604
  9. SPIRONOLACTONE [Concomitant]
     Active Substance: SPIRONOLACTONE
     Indication: Cardiac failure
     Dosage: 25 MG, QD
     Route: 048
     Dates: start: 20220409
  10. MAGNESIUM [Concomitant]
     Active Substance: MAGNESIUM
     Indication: Product used for unknown indication
     Dosage: 1 G
     Route: 065

REACTIONS (11)
  - Presyncope [Unknown]
  - Syncope [Unknown]
  - Loss of consciousness [Unknown]
  - Cardiac amyloidosis [Unknown]
  - Hypokalaemia [Unknown]
  - Pollakiuria [Unknown]
  - Decreased appetite [Unknown]
  - Vertigo [Unknown]
  - Gait disturbance [Unknown]
  - Muscle spasms [Unknown]
  - Medication error [Unknown]

NARRATIVE: CASE EVENT DATE: 20200813
